FAERS Safety Report 7529899-7 (Version None)
Quarter: 2011Q2

REPORT INFORMATION
  Report Type: 
  Country: None (occurrence: None)
  Receive Date: 20110607
  Receipt Date: 20110531
  Transmission Date: 20111010
  Serious: Yes (Hospitalization)
  Sender: FDA-Public Use
  Company Number: FR-B.I. PHARMACEUTICALS,INC./RIDGEFIELD-2011-BP-14663YA

PATIENT
  Sex: Male

DRUGS (9)
  1. ASPIRIN [Concomitant]
  2. TAMSULOSIN HCL [Suspect]
     Route: 048
     Dates: start: 20110107, end: 20110218
  3. ELIGARD [Suspect]
     Indication: PROSTATE CANCER
     Route: 058
     Dates: start: 20101009, end: 20110110
  4. BISOPROLOL FUMARATE [Concomitant]
  5. ATORVASTATIN [Concomitant]
     Dates: end: 20110218
  6. ZANEXTRA (ENALAPRIL, LERCANIDIPINE) [Concomitant]
     Dates: end: 20110218
  7. TAHOR (ATORVASTATINE) [Concomitant]
     Dates: end: 20110218
  8. VASTAREL (TRIMETAZIDINE) [Concomitant]
     Dates: end: 20110218
  9. ELIGARD [Suspect]
     Route: 058
     Dates: start: 20110110

REACTIONS (6)
  - DRUG RASH WITH EOSINOPHILIA AND SYSTEMIC SYMPTOMS [None]
  - TRANSAMINASES INCREASED [None]
  - EOSINOPHILIA [None]
  - PYREXIA [None]
  - RASH [None]
  - RENAL FAILURE [None]
